FAERS Safety Report 12321302 (Version 1)
Quarter: 2016Q2

REPORT INFORMATION
  Report Type: Spontaneous
  Country: US (occurrence: None)
  Receive Date: 20160429
  Receipt Date: 20160429
  Transmission Date: 20160815
  Serious: No
  Sender: FDA-Public Use
  Company Number: None

PATIENT
  Age: 56 Year
  Sex: Female
  Weight: 76.2 kg

DRUGS (1)
  1. AMLODIPINE BESYLATE 5MG, 5 MG [Suspect]
     Active Substance: AMLODIPINE BESYLATE
     Indication: HYPERTENSION
     Dosage: 30 TABLET(S) ONCE A DAY TAKEN BY MOUTH
     Route: 048
     Dates: start: 20160423, end: 20160428

REACTIONS (3)
  - Anxiety [None]
  - Myalgia [None]
  - Palpitations [None]

NARRATIVE: CASE EVENT DATE: 20160427
